FAERS Safety Report 4926075-9 (Version None)
Quarter: 2006Q1

REPORT INFORMATION
  Report Type: 
  Country: None (occurrence: None)
  Receive Date: 20060228
  Receipt Date: 20050808
  Transmission Date: 20060701
  Serious: No
  Sender: FDA-Public Use
  Company Number: US-GLAXOSMITHKLINE-A0569619A

PATIENT
  Age: 76 Year
  Sex: Female

DRUGS (4)
  1. LAMICTAL [Suspect]
     Dosage: 100MG UNKNOWN
     Route: 048
     Dates: end: 20050721
  2. TENORMIN [Concomitant]
  3. COUMADIN [Concomitant]
  4. BACTIN [Concomitant]

REACTIONS (2)
  - JOINT SWELLING [None]
  - RASH [None]
